FAERS Safety Report 16234970 (Version 5)
Quarter: 2019Q4

REPORT INFORMATION
  Report Type: Report from Study
  Country: US (occurrence: US)
  Receive Date: 20190424
  Receipt Date: 20191202
  Transmission Date: 20200122
  Serious: Yes (Hospitalization, Other)
  Sender: FDA-Public Use
  Company Number: US-ACTELION-A-NJ2019-189502

PATIENT
  Sex: Female
  Weight: 102.95 kg

DRUGS (2)
  1. ELIQUIS [Concomitant]
     Active Substance: APIXABAN
  2. OPSUMIT [Suspect]
     Active Substance: MACITENTAN
     Indication: PULMONARY ARTERIAL HYPERTENSION
     Dosage: 10 MG, QD
     Route: 048

REACTIONS (10)
  - Atrial fibrillation [Unknown]
  - Cardiac ablation [Unknown]
  - Dizziness [Unknown]
  - Malaise [Unknown]
  - Fatigue [Unknown]
  - Heart rate abnormal [Unknown]
  - Neck pain [Unknown]
  - Headache [Unknown]
  - Joint swelling [Unknown]
  - Blood pressure fluctuation [Unknown]
